FAERS Safety Report 6403174-6 (Version None)
Quarter: 2009Q4

REPORT INFORMATION
  Report Type: 
  Country: None (occurrence: None)
  Receive Date: 20091016
  Receipt Date: 20091006
  Transmission Date: 20100525
  Serious: Yes (Hospitalization)
  Sender: FDA-Public Use
  Company Number: SE-AMGEN-US320450

PATIENT
  Sex: Female

DRUGS (8)
  1. ENBREL [Suspect]
     Indication: RHEUMATOID ARTHRITIS
     Route: 058
     Dates: start: 20080515, end: 20081001
  2. TIBINIDE [Concomitant]
     Route: 048
     Dates: start: 20080401, end: 20081101
  3. PYRIDOXIN [Concomitant]
     Dates: start: 20080401
  4. ALVEDON [Concomitant]
     Indication: RHEUMATOID ARTHRITIS
     Dosage: DOSE UNKNOWN, WHEN NEEDED
  5. METHOTREXATE [Concomitant]
     Indication: RHEUMATOID ARTHRITIS
     Dosage: VARIOUS DOSES
     Route: 048
     Dates: start: 20050101, end: 20080101
  6. FOLACIN [Concomitant]
  7. NAPROXEN [Concomitant]
     Indication: RHEUMATOID ARTHRITIS
     Dosage: DOSE UNSPECIFIED, WHEN NEEDED
  8. PREDNISOLONE [Concomitant]
     Indication: RHEUMATOID ARTHRITIS
     Dosage: UNKNOWN
     Route: 065
     Dates: start: 20050101, end: 20080101

REACTIONS (3)
  - ALANINE AMINOTRANSFERASE INCREASED [None]
  - DEEP VEIN THROMBOSIS [None]
  - VASCULITIS CEREBRAL [None]
